FAERS Safety Report 4445844-5 (Version None)
Quarter: 2004Q3

REPORT INFORMATION
  Report Type: 
  Country: None (occurrence: None)
  Receive Date: 20040908
  Receipt Date: 20040908
  Transmission Date: 20050211
  Serious: Yes (Hospitalization)
  Sender: FDA-Public Use
  Company Number: None

PATIENT
  Age: 74 Year
  Sex: Female

DRUGS (5)
  1. CLOPIDOGREL [Suspect]
     Indication: PLATELET DISORDER
     Dosage: 75 MG QD
     Dates: start: 19990801
  2. ASPIRIN [Suspect]
     Indication: PLATELET DISORDER
     Dosage: 81 MG QD
     Dates: start: 19980401
  3. NITROGLYCERIN [Concomitant]
  4. OMEPRAZOLE [Concomitant]
  5. ISOSORBIDE [Concomitant]

REACTIONS (1)
  - GASTROINTESTINAL HAEMORRHAGE [None]
